FAERS Safety Report 4431920-X (Version None)
Quarter: 2004Q3

REPORT INFORMATION
  Report Type: 
  Country: None (occurrence: None)
  Receive Date: 20040818
  Receipt Date: 20040806
  Transmission Date: 20050211
  Serious: Yes (Other)
  Sender: FDA-Public Use
  Company Number: 2004049614

PATIENT
  Sex: Male

DRUGS (2)
  1. NEURONTIN [Suspect]
     Indication: ILL-DEFINED DISORDER
  2. VICODIN [Suspect]
     Indication: ILL-DEFINED DISORDER

REACTIONS (2)
  - NEURALGIA [None]
  - SPINAL FUSION ACQUIRED [None]
